FAERS Safety Report 4674982-7 (Version None)
Quarter: 2005Q2

REPORT INFORMATION
  Report Type: 
  Country: None (occurrence: None)
  Receive Date: 20050526
  Receipt Date: 20050524
  Transmission Date: 20051028
  Serious: Yes (Hospitalization, Other)
  Sender: FDA-Public Use
  Company Number: 2013358

PATIENT
  Age: 32 Year
  Sex: Male
  Weight: 113 kg

DRUGS (5)
  1. OXYCONTIN [Suspect]
     Indication: PAIN
     Dosage: INTRAVENOUS
     Route: 042
     Dates: start: 20000101
  2. GLUCOPHAGE [Concomitant]
  3. SOLU-MEDROL [Concomitant]
  4. PREDNISONE [Concomitant]
  5. ACTOS [Concomitant]

REACTIONS (20)
  - ANXIETY [None]
  - ASTHENIA [None]
  - BLOOD PRESSURE INCREASED [None]
  - CARDIAC MURMUR [None]
  - CELLULITIS [None]
  - CONJUNCTIVAL DISCOLOURATION [None]
  - DIABETES MELLITUS [None]
  - DRUG DEPENDENCE [None]
  - DRUG HYPERSENSITIVITY [None]
  - DYSARTHRIA [None]
  - EMOTIONAL DISTRESS [None]
  - FATIGUE [None]
  - HYPOCALCAEMIA [None]
  - IMPAIRED DRIVING ABILITY [None]
  - INTENTIONAL MISUSE [None]
  - MITRAL VALVE PROLAPSE [None]
  - PAIN [None]
  - PYREXIA [None]
  - SOMNOLENCE [None]
  - STOMACH DISCOMFORT [None]
